FAERS Safety Report 19598095 (Version 1)
Quarter: 2021Q3

REPORT INFORMATION
  Report Type: Spontaneous
  Country: US (occurrence: US)
  Receive Date: 20210722
  Receipt Date: 20210722
  Transmission Date: 20211014
  Serious: Yes (Other)
  Sender: FDA-Public Use
  Company Number: None

PATIENT
  Age: 25 Year
  Sex: Male
  Weight: 83.25 kg

DRUGS (3)
  1. VITAMIN D [Concomitant]
     Active Substance: VITAMIN D NOS
  2. ADDERALL [Concomitant]
     Active Substance: AMPHETAMINE ASPARTATE\AMPHETAMINE SULFATE\DEXTROAMPHETAMINE SACCHARATE\DEXTROAMPHETAMINE SULFATE
  3. TESTOSTERONE CYPIONATE INJECTION, USP [Suspect]
     Active Substance: TESTOSTERONE CYPIONATE
     Indication: HYPOGONADISM
     Dosage: ?          QUANTITY:1 ML;OTHER FREQUENCY:45MG EVERY TWO DAY;?
     Route: 030
     Dates: start: 20210504, end: 20210721

REACTIONS (7)
  - Product substitution issue [None]
  - Feeling cold [None]
  - Feeling abnormal [None]
  - Anxiety [None]
  - Dysphoria [None]
  - Panic attack [None]
  - Amnesia [None]

NARRATIVE: CASE EVENT DATE: 20210506
